FAERS Safety Report 6601698-X (Version None)
Quarter: 2010Q1

REPORT INFORMATION
  Report Type: 
  Country: None (occurrence: None)
  Receive Date: 20100225
  Receipt Date: 20100219
  Transmission Date: 20100710
  Serious: Yes (Hospitalization)
  Sender: FDA-Public Use
  Company Number: US-ROCHE-687045

PATIENT
  Sex: Female

DRUGS (4)
  1. HERCEPTIN [Suspect]
     Indication: BREAST CANCER
     Route: 042
     Dates: start: 20091113
  2. HERCEPTIN [Suspect]
     Route: 042
     Dates: start: 20091113, end: 20100205
  3. CARBOPLATIN [Suspect]
     Indication: BREAST CANCER
     Route: 065
     Dates: end: 20100205
  4. DOCETAXEL [Suspect]
     Indication: BREAST CANCER
     Route: 065
     Dates: end: 20100205

REACTIONS (1)
  - CHOLELITHIASIS [None]
